FAERS Safety Report 10667315 (Version 4)
Quarter: 2015Q2

REPORT INFORMATION
  Report Type: Report from Study
  Country: DE (occurrence: DE)
  Receive Date: 20141222
  Receipt Date: 20150417
  Transmission Date: 20150821
  Serious: Yes (Death, Hospitalization, Disabling)
  Sender: FDA-Public Use
  Company Number: PHHY2014DE164425

PATIENT
  Sex: Male
  Weight: 52 kg

DRUGS (25)
  1. DEKRISTOL [Concomitant]
     Active Substance: CHOLECALCIFEROL
     Indication: PRODUCT USED FOR UNKNOWN INDICATION
     Dosage: 20000 IU, (1 PER WEEK)
     Route: 065
     Dates: start: 20140512
  2. INSULIN [Concomitant]
     Active Substance: INSULIN NOS
     Indication: PRODUCT USED FOR UNKNOWN INDICATION
     Dosage: UNK, PRN
     Route: 065
     Dates: start: 20050214
  3. SOLEDUM [Concomitant]
     Active Substance: EUCALYPTOL
     Dosage: 200 MG, QD
     Route: 065
     Dates: start: 20140526
  4. LISINOPRIL HEUMANN [Concomitant]
     Dosage: 10 MG, QD
     Route: 065
     Dates: start: 20141104
  5. NO TREATMENT RECEIVED [Suspect]
     Active Substance: UNSPECIFIED INGREDIENT
     Indication: PRODUCT USED FOR UNKNOWN INDICATION
     Route: 065
  6. THEOPHYLLIN AL [Concomitant]
     Dosage: 300 MG, QD
     Route: 065
     Dates: start: 20140526
  7. ACLIDINIUM [Concomitant]
     Active Substance: ACLIDINIUM BROMIDE
     Indication: PRODUCT USED FOR UNKNOWN INDICATION
     Route: 065
  8. FORMOTEROL HEXAL [Suspect]
     Active Substance: FORMOTEROL FUMARATE
     Indication: CHRONIC OBSTRUCTIVE PULMONARY DISEASE
     Dosage: 12 UG, BID
     Route: 065
     Dates: start: 20050816
  9. PANTOPRAZOL TAD [Concomitant]
     Indication: PRODUCT USED FOR UNKNOWN INDICATION
     Dosage: 20 MG, QD
     Route: 065
     Dates: start: 20100505
  10. ALENDRONIC ACID [Concomitant]
     Active Substance: ALENDRONIC ACID
     Indication: PRODUCT USED FOR UNKNOWN INDICATION
     Dosage: 12 MG, QD
     Route: 065
     Dates: start: 20120828
  11. ALENDRONSAEURE HEUMANN [Concomitant]
     Active Substance: ALENDRONATE SODIUM
     Indication: PRODUCT USED FOR UNKNOWN INDICATION
     Dosage: 70 MG, PER WEEK
     Route: 065
     Dates: start: 20120829
  12. BRETARIS GENUAIR [Concomitant]
  13. HCT HEXAL [Concomitant]
     Active Substance: HYDROCHLOROTHIAZIDE
     Dosage: 12.5 MG, QD
     Route: 065
     Dates: start: 20140526, end: 20141030
  14. NYSTATIN HOLSTEN [Concomitant]
     Indication: PRODUCT USED FOR UNKNOWN INDICATION
     Dosage: 24 ML, (1 PIPETTE POSTPRANDIAL RINSE AND SWALLOW)
     Route: 065
  15. BERODUAL [Concomitant]
     Active Substance: FENOTEROL HYDROBROMIDE\IPRATROPIUM BROMIDE
     Indication: PRODUCT USED FOR UNKNOWN INDICATION
     Dosage: 1 DF, (20/50 ?G) (2 PUFFS) PER REQUIRE NEED IN THE EVENING)
     Route: 055
     Dates: start: 20100420
  16. DEKRISTOL [Concomitant]
     Active Substance: CHOLECALCIFEROL
  17. HCT HEXAL [Concomitant]
     Active Substance: HYDROCHLOROTHIAZIDE
     Indication: PRODUCT USED FOR UNKNOWN INDICATION
     Dosage: 12.5 MG, QD
     Route: 065
     Dates: start: 20110211, end: 20140526
  18. SOLEDUM [Concomitant]
     Active Substance: EUCALYPTOL
     Indication: PRODUCT USED FOR UNKNOWN INDICATION
     Dosage: 200 MG, BID
     Route: 065
     Dates: start: 20111201
  19. THEOPHYLLIN AL [Concomitant]
     Indication: PRODUCT USED FOR UNKNOWN INDICATION
     Dosage: 300 MG, BID
     Route: 065
     Dates: start: 20090505, end: 20111201
  20. DEKRISTOL [Concomitant]
     Active Substance: CHOLECALCIFEROL
     Dosage: 20000 IU, 1 PER WEEK
     Route: 065
     Dates: start: 20110203
  21. KREON [Concomitant]
     Active Substance: PANCRELIPASE
     Indication: PRODUCT USED FOR UNKNOWN INDICATION
     Dosage: 25000 OT, TID
     Route: 065
     Dates: start: 20050214
  22. LISINOPRIL HEUMANN [Concomitant]
     Indication: PRODUCT USED FOR UNKNOWN INDICATION
     Dosage: 40 MG, QD
     Route: 065
     Dates: start: 20110303
  23. LISINOPRIL HEUMANN [Concomitant]
     Dosage: 20 MG, BID
     Route: 065
     Dates: start: 20110303
  24. MORPHINE [Concomitant]
     Active Substance: MORPHINE
     Indication: PRODUCT USED FOR UNKNOWN INDICATION
     Dosage: 10 MG, BID
     Route: 065
     Dates: start: 20140811
  25. BRETARIS GENUAIR [Concomitant]
     Indication: PRODUCT USED FOR UNKNOWN INDICATION
     Dosage: 322 UG, BID
     Route: 065
     Dates: start: 20140526, end: 20140526

REACTIONS (14)
  - Protein deficiency [Fatal]
  - Pneumonia [Recovering/Resolving]
  - Condition aggravated [Not Recovered/Not Resolved]
  - Ascites [Unknown]
  - Oedema [Fatal]
  - Duodenal ulcer haemorrhage [Recovering/Resolving]
  - Diarrhoea [Recovered/Resolved]
  - Dyspnoea exertional [Fatal]
  - Renal failure [Recovering/Resolving]
  - Infective exacerbation of chronic obstructive airways disease [Recovering/Resolving]
  - Dyspnoea [Not Recovered/Not Resolved]
  - Sepsis [Fatal]
  - Cachexia [Fatal]
  - Anaemia [Fatal]

NARRATIVE: CASE EVENT DATE: 20130424
